FAERS Safety Report 12145432 (Version 1)
Quarter: 2016Q1

REPORT INFORMATION
  Report Type: Spontaneous
  Country: GB (occurrence: GB)
  Receive Date: 20160304
  Receipt Date: 20160304
  Transmission Date: 20160526
  Serious: Yes (Disabling)
  Sender: FDA-Public Use
  Company Number: GB-TEVA-638950ACC

PATIENT
  Age: 90 Year
  Sex: Male

DRUGS (12)
  1. CHEMYDUR XL [Concomitant]
  2. NICORANDIL [Concomitant]
     Active Substance: NICORANDIL
  3. TAMSULOSIN [Concomitant]
     Active Substance: TAMSULOSIN
  4. PREDNISOLONE. [Suspect]
     Active Substance: PREDNISOLONE
     Indication: INFECTIVE EXACERBATION OF CHRONIC OBSTRUCTIVE AIRWAYS DISEASE
     Dates: start: 20151224
  5. FINASTERIDE. [Concomitant]
     Active Substance: FINASTERIDE
  6. TIOTROPIUM [Concomitant]
     Active Substance: TIOTROPIUM
  7. BISOPROLOL [Concomitant]
     Active Substance: BISOPROLOL
  8. SALBUTAMOL [Concomitant]
     Active Substance: ALBUTEROL
  9. ASPIRIN. [Concomitant]
     Active Substance: ASPIRIN
  10. ATORVASTATIN [Concomitant]
     Active Substance: ATORVASTATIN
  11. OMEPRAZOLE. [Concomitant]
     Active Substance: OMEPRAZOLE
  12. LEVOFLOXACIN. [Suspect]
     Active Substance: LEVOFLOXACIN
     Indication: INFECTIVE EXACERBATION OF CHRONIC OBSTRUCTIVE AIRWAYS DISEASE
     Route: 048
     Dates: start: 20151224

REACTIONS (2)
  - Tendon rupture [Not Recovered/Not Resolved]
  - Joint swelling [Not Recovered/Not Resolved]

NARRATIVE: CASE EVENT DATE: 20151226
